FAERS Safety Report 4281308-X (Version None)
Quarter: 2004Q1

REPORT INFORMATION
  Report Type: 
  Country: None (occurrence: None)
  Receive Date: 20040129
  Receipt Date: 20010309
  Transmission Date: 20041129
  Serious: Yes (Death, Hospitalization)
  Sender: FDA-Public Use
  Company Number: US-ROCHE-256171

PATIENT
  Age: 42 Year
  Sex: Female

DRUGS (16)
  1. DACLIZUMAB [Suspect]
     Route: 042
     Dates: start: 20010118, end: 20010118
  2. DACLIZUMAB [Suspect]
     Route: 042
     Dates: start: 20010131, end: 20010131
  3. MYCOPHENOLATE MOFETIL [Suspect]
     Route: 065
  4. PREDNISONE [Suspect]
     Route: 065
  5. PROGRAF [Suspect]
     Route: 048
  6. LOPRESSOR [Concomitant]
     Route: 048
  7. PRAVACHOL [Concomitant]
  8. REGLAN [Concomitant]
     Dosage: UNSPECIFIED DOSE INCREASED TO 15 MG EVERY 6 HOURS ON 28 FEB 2001.
     Route: 048
  9. FLUCONAZOLE [Concomitant]
     Route: 048
  10. ASPIRIN [Concomitant]
     Route: 048
  11. DAPSONE [Concomitant]
     Route: 048
  12. PROCRIT [Concomitant]
     Dosage: UNSPECIFIED DOSE INCREASED ON 7 MAR 2001 TO 6000 UNITS EVERY MONDAY, WEDNESDAY AND FRIDAY.
     Route: 058
  13. SYNTHROID [Concomitant]
     Route: 048
  14. NITROGLYCERIN [Concomitant]
     Indication: CHEST PAIN
     Dosage: EVERY 5 MINUTES UP TO 3 TIMES.
     Route: 060
  15. PREVACID [Concomitant]
     Dosage: UNSPECIFIED DOSE INCREASED ON 1 MAR 2001 TO BID.
  16. BENAZEPRIL HCL [Concomitant]

REACTIONS (10)
  - CYTOMEGALOVIRUS GASTRITIS [None]
  - FAECAL OCCULT BLOOD POSITIVE [None]
  - GASTRIC ULCER [None]
  - GLIOBLASTOMA MULTIFORME [None]
  - HAEMOGLOBIN DECREASED [None]
  - IMPAIRED GASTRIC EMPTYING [None]
  - OESOPHAGITIS [None]
  - OPTIC NEUROPATHY [None]
  - RENAL CYST [None]
  - UTERINE LEIOMYOMA [None]
